FAERS Safety Report 5884513-1 (Version None)
Quarter: 2008Q3

REPORT INFORMATION
  Report Type: 
  Country: None (occurrence: None)
  Receive Date: 20080916
  Receipt Date: 20080904
  Transmission Date: 20090109
  Serious: Yes (Hospitalization)
  Sender: FDA-Public Use
  Company Number: US-JNJFOC-20080901743

PATIENT
  Age: 7 Decade
  Sex: Male

DRUGS (2)
  1. LEVAQUIN [Suspect]
     Indication: URINARY TRACT INFECTION
     Route: 048
  2. AZOR [Concomitant]
     Indication: BLOOD PRESSURE
     Route: 065

REACTIONS (10)
  - HALLUCINATION [None]
  - HYPERTENSION [None]
  - MUSCLE CONTRACTURE [None]
  - MUSCULOSKELETAL PAIN [None]
  - NIGHT SWEATS [None]
  - NIGHTMARE [None]
  - PAIN IN EXTREMITY [None]
  - RASH [None]
  - SLEEP DISORDER [None]
  - TREMOR [None]
